FAERS Safety Report 7213071-4 (Version None)
Quarter: 2011Q1

REPORT INFORMATION
  Report Type: 
  Country: None (occurrence: None)
  Receive Date: 20110106
  Receipt Date: 20101227
  Transmission Date: 20110831
  Serious: Yes (Hospitalization)
  Sender: FDA-Public Use
  Company Number: US-ACTELION-A-US2010-43194

PATIENT

DRUGS (2)
  1. COUMADIN [Concomitant]
  2. BOSENTAN TABLET UNKNOWN US MG [Suspect]
     Indication: PULMONARY ARTERIAL HYPERTENSION
     Dosage: UNK
     Route: 048
     Dates: start: 20080818

REACTIONS (3)
  - PULMONARY ARTERIAL HYPERTENSION [None]
  - HYPERTENSIVE CRISIS [None]
  - SYNCOPE [None]
